FAERS Safety Report 7249592-8 (Version None)
Quarter: 2011Q1

REPORT INFORMATION
  Report Type: 
  Country: None (occurrence: None)
  Receive Date: 20110128
  Receipt Date: 20101130
  Transmission Date: 20110831
  Serious: Yes (Hospitalization)
  Sender: FDA-Public Use
  Company Number: US-BAYER-201038183NA

PATIENT
  Sex: Female
  Weight: 62.132 kg

DRUGS (6)
  1. OCELLA [Suspect]
  2. YASMIN [Suspect]
     Indication: PROPHYLAXIS
     Dosage: UNK
     Dates: start: 20050101, end: 20090101
  3. YAZ [Suspect]
     Indication: CONTRACEPTION
  4. PEPTO-BISMOL [Concomitant]
     Indication: ABDOMINAL DISCOMFORT
     Dosage: 2 DF, UNK
  5. YASMIN [Suspect]
     Indication: CONTRACEPTION
  6. YAZ [Suspect]
     Indication: PROPHYLAXIS
     Dosage: UNK
     Dates: start: 20050101, end: 20090101

REACTIONS (3)
  - CHOLECYSTITIS ACUTE [None]
  - CHOLECYSTITIS CHRONIC [None]
  - BILIARY DYSKINESIA [None]
